FAERS Safety Report 17766163 (Version 2)
Quarter: 2020Q3

REPORT INFORMATION
  Report Type: Spontaneous
  Country: US (occurrence: US)
  Receive Date: 20200511
  Receipt Date: 20200921
  Transmission Date: 20201102
  Serious: Yes (Hospitalization, Other)
  Sender: FDA-Public Use
  Company Number: US-ASTRAZENECA-2020SE60840

PATIENT
  Age: 41 Year
  Sex: Female
  Weight: 78.9 kg

DRUGS (66)
  1. NEXIUM [Suspect]
     Active Substance: ESOMEPRAZOLE MAGNESIUM
     Indication: GASTROOESOPHAGEAL REFLUX DISEASE
     Route: 048
     Dates: start: 201011, end: 201310
  2. PRILOSEC [Suspect]
     Active Substance: OMEPRAZOLE MAGNESIUM
     Indication: GASTROOESOPHAGEAL REFLUX DISEASE
     Dosage: GENERIC
     Route: 065
     Dates: start: 201009, end: 201010
  3. AMLODIPINE [Concomitant]
     Active Substance: AMLODIPINE BESYLATE
     Indication: HYPERTENSION
     Dates: start: 2013
  4. FUROSEMIDE. [Concomitant]
     Active Substance: FUROSEMIDE
     Indication: DIURETIC THERAPY
     Dates: start: 2010
  5. NAPROXEN. [Concomitant]
     Active Substance: NAPROXEN
  6. TRAMADOL. [Concomitant]
     Active Substance: TRAMADOL
  7. HUMALOG [Concomitant]
     Active Substance: INSULIN LISPRO
  8. VENTOLIN [Concomitant]
     Active Substance: ALBUTEROL SULFATE
  9. NEXIUM [Suspect]
     Active Substance: ESOMEPRAZOLE MAGNESIUM
     Indication: GASTROOESOPHAGEAL REFLUX DISEASE
     Route: 048
     Dates: start: 2010, end: 2016
  10. PRILOSEC [Suspect]
     Active Substance: OMEPRAZOLE MAGNESIUM
     Indication: GASTROOESOPHAGEAL REFLUX DISEASE
     Route: 048
     Dates: start: 1991, end: 2010
  11. LANTUS [Concomitant]
     Active Substance: INSULIN GLARGINE
     Indication: DIABETES MELLITUS
     Dates: start: 1990
  12. CHERATUSSIN [Concomitant]
     Active Substance: AMMONIUM CHLORIDE\DEXTROMETHORPHAN\SODIUM CITRATE
  13. LEVEMIR [Concomitant]
     Active Substance: INSULIN DETEMIR
  14. CEFADROXIL. [Concomitant]
     Active Substance: CEFADROXIL
  15. PROAIR HFA [Concomitant]
     Active Substance: ALBUTEROL SULFATE
  16. PREDNISONE. [Concomitant]
     Active Substance: PREDNISONE
  17. KETOCONAZOLE. [Concomitant]
     Active Substance: KETOCONAZOLE
  18. QUETIAPINE FUMARATE. [Concomitant]
     Active Substance: QUETIAPINE FUMARATE
  19. LISINOPRIL. [Concomitant]
     Active Substance: LISINOPRIL
  20. NITROFURANTOIN. [Concomitant]
     Active Substance: NITROFURANTOIN
  21. NITROGLYCERIN. [Concomitant]
     Active Substance: NITROGLYCERIN
  22. IPRATROPIUM [Concomitant]
     Active Substance: IPRATROPIUM
  23. DIGOXIN. [Concomitant]
     Active Substance: DIGOXIN
  24. VITAMIN D2 [Concomitant]
     Active Substance: ERGOCALCIFEROL
  25. OFLOXACIN. [Concomitant]
     Active Substance: OFLOXACIN
  26. AZITHROMYCIN ANHYDROUS. [Concomitant]
     Active Substance: AZITHROMYCIN ANHYDROUS
  27. NEXIUM [Suspect]
     Active Substance: ESOMEPRAZOLE MAGNESIUM
     Indication: GASTROOESOPHAGEAL REFLUX DISEASE
     Route: 048
     Dates: start: 201310, end: 201603
  28. NEXIUM [Suspect]
     Active Substance: ESOMEPRAZOLE MAGNESIUM
     Indication: GASTROOESOPHAGEAL REFLUX DISEASE
     Dosage: GENERIC
     Route: 065
     Dates: start: 201310, end: 201603
  29. PANTOPRAZOLE [Suspect]
     Active Substance: PANTOPRAZOLE
     Indication: GASTROOESOPHAGEAL REFLUX DISEASE
     Dosage: GENERIC
     Route: 065
     Dates: start: 201911
  30. RANITIDINE. [Concomitant]
     Active Substance: RANITIDINE
     Dates: start: 200911, end: 201911
  31. GABAPENTIN. [Concomitant]
     Active Substance: GABAPENTIN
  32. BUDESONIDE. [Concomitant]
     Active Substance: BUDESONIDE
  33. ONDANSETRON [Concomitant]
     Active Substance: ONDANSETRON
  34. FAMOTIDINE. [Concomitant]
     Active Substance: FAMOTIDINE
     Dates: start: 201901
  35. ADVAIR HFA [Concomitant]
     Active Substance: FLUTICASONE PROPIONATE\SALMETEROL XINAFOATE
  36. PLAVIX [Concomitant]
     Active Substance: CLOPIDOGREL BISULFATE
  37. PHENAZOPYRIDINE. [Concomitant]
     Active Substance: PHENAZOPYRIDINE
  38. MELOXICAM. [Concomitant]
     Active Substance: MELOXICAM
  39. PANTOPRAZOLE [Suspect]
     Active Substance: PANTOPRAZOLE
     Indication: GASTROOESOPHAGEAL REFLUX DISEASE
     Dosage: GENERIC
     Route: 065
     Dates: start: 201812, end: 201901
  40. PANTOPRAZOLE [Suspect]
     Active Substance: PANTOPRAZOLE
     Indication: GASTROOESOPHAGEAL REFLUX DISEASE
     Dosage: GENERIC
     Route: 065
     Dates: start: 201905, end: 201908
  41. METOPROLOL. [Concomitant]
     Active Substance: METOPROLOL
     Indication: HYPERTENSION
     Dates: start: 2009
  42. NOVOLOG [Concomitant]
     Active Substance: INSULIN ASPART
     Indication: DIABETES MELLITUS
     Dates: start: 1990
  43. CIPROFLOXACIN. [Concomitant]
     Active Substance: CIPROFLOXACIN
  44. PHENAZOPYRIDINE. [Concomitant]
     Active Substance: PHENAZOPYRIDINE
  45. TRILIPIX [Concomitant]
     Active Substance: FENOFIBRIC ACID
  46. CEPHALEXIN. [Concomitant]
     Active Substance: CEPHALEXIN
  47. METRONIDAZOLE. [Concomitant]
     Active Substance: METRONIDAZOLE
  48. TOPIRAMATE. [Concomitant]
     Active Substance: TOPIRAMATE
  49. ATORVASTATIN [Concomitant]
     Active Substance: ATORVASTATIN
  50. FENOFIBRATE. [Concomitant]
     Active Substance: FENOFIBRATE
  51. NEXIUM [Suspect]
     Active Substance: ESOMEPRAZOLE MAGNESIUM
     Indication: GASTROOESOPHAGEAL REFLUX DISEASE
     Dosage: GENERIC
     Route: 065
     Dates: start: 201603, end: 201604
  52. LYRICA [Concomitant]
     Active Substance: PREGABALIN
  53. METFORMIN [Concomitant]
     Active Substance: METFORMIN HYDROCHLORIDE
  54. GLUCAGON. [Concomitant]
     Active Substance: GLUCAGON
  55. CLINDAMYCIN. [Concomitant]
     Active Substance: CLINDAMYCIN
  56. NEXIUM [Suspect]
     Active Substance: ESOMEPRAZOLE MAGNESIUM
     Indication: GASTROOESOPHAGEAL REFLUX DISEASE
     Route: 048
     Dates: start: 1991, end: 2010
  57. NEXIUM [Suspect]
     Active Substance: ESOMEPRAZOLE MAGNESIUM
     Indication: GASTROOESOPHAGEAL REFLUX DISEASE
     Route: 048
     Dates: start: 201604, end: 201608
  58. PANTOPRAZOLE [Suspect]
     Active Substance: PANTOPRAZOLE
     Indication: GASTROOESOPHAGEAL REFLUX DISEASE
     Dosage: GENERIC
     Route: 065
     Dates: start: 201903, end: 201904
  59. ROSUVASTATIN. [Concomitant]
     Active Substance: ROSUVASTATIN
     Indication: HYPERLIPIDAEMIA
     Dates: start: 2013
  60. LOSARTAN/POTASSIUM [Concomitant]
     Indication: HYPERTENSION
     Dates: start: 2013
  61. HYDROCODONE BITARTRATE AND ACETAMINOPHEN [Concomitant]
     Active Substance: ACETAMINOPHEN\HYDROCODONE BITARTRATE
  62. METOCLOPRAMIDE. [Concomitant]
     Active Substance: METOCLOPRAMIDE
  63. DICYCLOMINE [Concomitant]
     Active Substance: DICYCLOMINE HYDROCHLORIDE
  64. MONTELUKAST [Concomitant]
     Active Substance: MONTELUKAST SODIUM
  65. VASCEPA [Concomitant]
     Active Substance: ICOSAPENT ETHYL
  66. PREGABALIN. [Concomitant]
     Active Substance: PREGABALIN

REACTIONS (1)
  - Chronic kidney disease [Not Recovered/Not Resolved]

NARRATIVE: CASE EVENT DATE: 1999
